FAERS Safety Report 11570817 (Version 1)
Quarter: 2015Q3

REPORT INFORMATION
  Report Type: Spontaneous
  Country: US (occurrence: US)
  Receive Date: 20150916
  Receipt Date: 20150916
  Transmission Date: 20151125
  Serious: No
  Sender: FDA-Public Use
  Company Number: US-ELI_LILLY_AND_COMPANY-US200909002928

PATIENT
  Sex: Female

DRUGS (4)
  1. XALATAN [Concomitant]
     Active Substance: LATANOPROST
     Indication: GLAUCOMA
     Dosage: UNK, UNK
  2. AZOPT [Concomitant]
     Active Substance: BRINZOLAMIDE
     Indication: GLAUCOMA
     Dosage: UNK, UNK
  3. FORTEO [Suspect]
     Active Substance: TERIPARATIDE
     Indication: OSTEOPOROSIS
     Dosage: UNK, UNK
     Dates: start: 20090912
  4. BETAMOL [Concomitant]
     Indication: GLAUCOMA
     Dates: end: 20090912

REACTIONS (9)
  - Injection site vesicles [Recovered/Resolved]
  - Feeling jittery [Recovering/Resolving]
  - Sleep disorder [Recovering/Resolving]
  - Bone pain [Not Recovered/Not Resolved]
  - Wrong technique in product usage process [Recovered/Resolved]
  - Arthralgia [Not Recovered/Not Resolved]
  - Overdose [Recovered/Resolved]
  - Mood altered [Unknown]
  - Discomfort [Unknown]

NARRATIVE: CASE EVENT DATE: 200909
